FAERS Safety Report 24011915 (Version 2)
Quarter: 2024Q3

REPORT INFORMATION
  Report Type: Spontaneous
  Country: SE (occurrence: SE)
  Receive Date: 20240625
  Receipt Date: 20240829
  Transmission Date: 20241017
  Serious: Yes (Other)
  Sender: SANOFI AVENTIS
  Company Number: SE-SA-2024SA180812

PATIENT
  Age: 30 Year
  Sex: Female

DRUGS (4)
  1. CAPLACIZUMAB [Suspect]
     Active Substance: CAPLACIZUMAB
     Indication: Immune thrombocytopenia
     Dosage: 10 MG, QD
     Route: 042
  2. CAPLACIZUMAB [Suspect]
     Active Substance: CAPLACIZUMAB
     Dosage: 10 MG, QD
     Route: 058
  3. PREDNISOLONE [Concomitant]
     Active Substance: PREDNISOLONE
     Indication: Immune thrombocytopenia
     Dosage: 1 MG/KG, QD
  4. RITUXIMAB [Concomitant]
     Active Substance: RITUXIMAB
     Indication: Immune thrombocytopenia
     Dosage: 375 MG/M2, QW (TOW DOSES DURING FIRST WEEK)

REACTIONS (10)
  - Embolism venous [Recovering/Resolving]
  - Deep vein thrombosis [Recovering/Resolving]
  - Pulmonary embolism [Recovering/Resolving]
  - Discomfort [Recovering/Resolving]
  - Pain [Recovering/Resolving]
  - Abdominal pain [Recovering/Resolving]
  - Traumatic haemorrhage [Recovering/Resolving]
  - Skin swelling [Recovering/Resolving]
  - Vaginal haemorrhage [Recovering/Resolving]
  - Subcutaneous haematoma [Recovering/Resolving]
